FAERS Safety Report 5566307-X (Version None)
Quarter: 2007Q4

REPORT INFORMATION
  Report Type: 
  Country: None (occurrence: None)
  Receive Date: 20071214
  Receipt Date: 20071203
  Transmission Date: 20080405
  Serious: Yes (Death)
  Sender: FDA-Public Use
  Company Number: 2007337057

PATIENT
  Age: 70 Year
  Sex: Male

DRUGS (1)
  1. PHENYLEPHRINE (PHENYLEPHRINE) [Suspect]
     Dates: start: 20000301

REACTIONS (1)
  - MYOCARDIAL INFARCTION [None]
